FAERS Safety Report 4345214-4 (Version None)
Quarter: 2004Q2

REPORT INFORMATION
  Report Type: 
  Country: None (occurrence: None)
  Receive Date: 20040420
  Receipt Date: 20040407
  Transmission Date: 20050107
  Serious: Yes (Hospitalization, Other)
  Sender: FDA-Public Use
  Company Number: US-SHR-04-023748

PATIENT
  Sex: Female
  Weight: 50.7 kg

DRUGS (1)
  1. MIRENA [Suspect]
     Indication: CONTRACEPTION
     Dosage: 20 UG/DAY, CONT, INTRA-UTERINE
     Route: 015
     Dates: start: 20030627, end: 20030703

REACTIONS (7)
  - BLOOD PRESSURE DECREASED [None]
  - GENITAL HAEMORRHAGE [None]
  - HAEMATOCRIT DECREASED [None]
  - HAEMOGLOBIN DECREASED [None]
  - IUCD COMPLICATION [None]
  - UTERINE CERVICAL LACERATION [None]
  - WEIGHT DECREASED [None]
